FAERS Safety Report 10432450 (Version 1)
Quarter: 2014Q3

REPORT INFORMATION
  Report Type: Spontaneous
  Country: US (occurrence: None)
  Receive Date: 20140904
  Receipt Date: 20140904
  Transmission Date: 20150326
  Serious: Yes (Other)
  Sender: FDA-Public Use
  Company Number: None

PATIENT
  Age: 19 Year
  Sex: Female
  Weight: 61.24 kg

DRUGS (1)
  1. AZITHROMYCIN [Suspect]
     Active Substance: AZITHROMYCIN ANHYDROUS
     Indication: SINUSITIS
     Dosage: 2 FIRST DAY, THEN 1 DAILY
     Route: 048
     Dates: start: 20140811, end: 20140817

REACTIONS (7)
  - Yellow skin [None]
  - Nausea [None]
  - Chromaturia [None]
  - Ocular icterus [None]
  - Blood bilirubin increased [None]
  - Fatigue [None]
  - Abdominal pain [None]

NARRATIVE: CASE EVENT DATE: 20140810
